FAERS Safety Report 6672403-6 (Version None)
Quarter: 2010Q2

REPORT INFORMATION
  Report Type: 
  Country: None (occurrence: None)
  Receive Date: 20100408
  Receipt Date: 20100324
  Transmission Date: 20101027
  Serious: Yes (Hospitalization, Other)
  Sender: FDA-Public Use
  Company Number: ES-ELI_LILLY_AND_COMPANY-ES201003007492

PATIENT
  Sex: Female
  Weight: 51 kg

DRUGS (6)
  1. FORTEO [Suspect]
     Indication: OSTEOPOROSIS
     Dosage: 20 UG, DAILY (1/D)
     Route: 058
     Dates: start: 20100107, end: 20100301
  2. PRITOR [Concomitant]
     Indication: HYPERTENSION
     Dosage: 80 MG, DAILY (1/D)
     Route: 048
     Dates: start: 20090901
  3. NEXIUM [Concomitant]
     Dosage: 20 MG, DAILY (1/D)
     Route: 048
  4. SEROQUEL [Concomitant]
     Indication: HALLUCINATION
     Dosage: 20 MG, DAILY (1/D)
     Route: 048
  5. ZOLPIDEM [Concomitant]
     Dosage: 10 MG, DAILY (1/D)
     Route: 048
  6. EFENSOL [Concomitant]
     Indication: BLOOD BILIRUBIN INCREASED
     Dosage: 1 TEA SPOON, UNK
     Route: 065
     Dates: start: 20100301

REACTIONS (13)
  - ABDOMINAL PAIN [None]
  - ALANINE AMINOTRANSFERASE INCREASED [None]
  - ASPARTATE AMINOTRANSFERASE INCREASED [None]
  - BLOOD ALKALINE PHOSPHATASE INCREASED [None]
  - BLOOD LACTATE DEHYDROGENASE INCREASED [None]
  - DECREASED APPETITE [None]
  - EYE PRURITUS [None]
  - FATIGUE [None]
  - GAMMA-GLUTAMYLTRANSFERASE INCREASED [None]
  - HOSPITALISATION [None]
  - ORAL PRURITUS [None]
  - PROTEIN TOTAL DECREASED [None]
  - PRURITUS [None]
